FAERS Safety Report 5742724-X (Version None)
Quarter: 2008Q2

REPORT INFORMATION
  Report Type: 
  Country: None (occurrence: None)
  Receive Date: 20080519
  Receipt Date: 20080512
  Transmission Date: 20081010
  Serious: Yes (Other)
  Sender: FDA-Public Use
  Company Number: B0520641A

PATIENT
  Sex: Female

DRUGS (4)
  1. COMBIVIR [Suspect]
     Route: 048
  2. EFAVIRENZ [Suspect]
     Route: 048
  3. ETONOGESTREL [Suspect]
     Route: 058
     Dates: start: 20060101
  4. CONTRACEPTIVE IMPLANT [Concomitant]

REACTIONS (4)
  - DRUG EXPOSURE DURING PREGNANCY [None]
  - DRUG INTERACTION [None]
  - PREGNANCY [None]
  - UNINTENDED PREGNANCY [None]
